FAERS Safety Report 4415570-7 (Version None)
Quarter: 2004Q3

REPORT INFORMATION
  Report Type: 
  Country: None (occurrence: None)
  Receive Date: 20040730
  Receipt Date: 20040714
  Transmission Date: 20050211
  Serious: Yes (Hospitalization)
  Sender: FDA-Public Use
  Company Number: ATO-04-0661

PATIENT
  Age: 60 Year
  Sex: Female

DRUGS (5)
  1. TRISENOX [Suspect]
     Indication: MULTIPLE MYELOMA
     Dosage: 16 MG (0.25 MG/KG, ONCE) IVI
     Route: 042
     Dates: start: 20040712, end: 20040712
  2. MELPHALAN (MELPHALAN) [Suspect]
     Indication: MULTIPLE MYELOMA
     Dosage: 6 MG (6 MG, ONCE), ORAL
     Route: 048
     Dates: start: 20040712, end: 20040712
  3. ASCORBIC ACID [Suspect]
     Indication: MULTIPLE MYELOMA
     Dates: start: 20040712, end: 20040712
  4. OXYCONTIN [Concomitant]
  5. OXYIR (OXYCODONE HYDROCHLORIDE) [Concomitant]

REACTIONS (7)
  - ANAEMIA [None]
  - ASTHENIA [None]
  - DISORIENTATION [None]
  - HEADACHE [None]
  - NAUSEA [None]
  - PYREXIA [None]
  - VOMITING [None]
